FAERS Safety Report 4924829-6 (Version None)
Quarter: 2006Q1

REPORT INFORMATION
  Report Type: 
  Country: None (occurrence: None)
  Receive Date: 20060222
  Receipt Date: 20060203
  Transmission Date: 20060701
  Serious: Yes (Hospitalization)
  Sender: FDA-Public Use
  Company Number: IMP_2053_2006

PATIENT
  Age: 18 Year
  Sex: Male

DRUGS (1)
  1. CARBIDOPA AND LEVODOPA [Suspect]
     Indication: TREMOR
     Dosage: 1 DF TID
     Dates: start: 20040101, end: 20040101

REACTIONS (8)
  - ABNORMAL BEHAVIOUR [None]
  - AGITATION [None]
  - DISEASE RECURRENCE [None]
  - GRIMACING [None]
  - MUSCLE TWITCHING [None]
  - OBSESSIVE-COMPULSIVE DISORDER [None]
  - SPEECH DISORDER [None]
  - TIC [None]
